FAERS Safety Report 17156913 (Version 5)
Quarter: 2021Q2

REPORT INFORMATION
  Report Type: Spontaneous
  Country: US (occurrence: US)
  Receive Date: 20191216
  Receipt Date: 20210627
  Transmission Date: 20210716
  Serious: Yes (Other)
  Sender: FDA-Public Use
  Company Number: US-GILEAD-2019-0441951

PATIENT
  Sex: Male
  Weight: 104.31 kg

DRUGS (14)
  1. EMTRICITABINE [Concomitant]
     Active Substance: EMTRICITABINE
  2. OMEPRAZOLE. [Concomitant]
     Active Substance: OMEPRAZOLE
  3. TRIUMEQ [Concomitant]
     Active Substance: ABACAVIR SULFATE\DOLUTEGRAVIR SODIUM\LAMIVUDINE
  4. TRIAMCINOLONE [Concomitant]
     Active Substance: TRIAMCINOLONE
  5. TRUVADA [Suspect]
     Active Substance: EMTRICITABINE\TENOFOVIR DISOPROXIL FUMARATE
     Indication: HIV INFECTION
     Dosage: UNK
     Route: 048
     Dates: start: 2009, end: 2017
  6. PRAVASTATIN. [Concomitant]
     Active Substance: PRAVASTATIN
  7. FLUNISOLIDE. [Concomitant]
     Active Substance: FLUNISOLIDE
  8. IBUPROFEN. [Concomitant]
     Active Substance: IBUPROFEN
  9. LOPINAVIR [Concomitant]
     Active Substance: LOPINAVIR
  10. ALENDRONATE [Concomitant]
     Active Substance: ALENDRONATE SODIUM
  11. EPZICOM [Concomitant]
     Active Substance: ABACAVIR SULFATE\LAMIVUDINE
  12. ACETAMINOPHEN. [Concomitant]
     Active Substance: ACETAMINOPHEN
  13. KALETRA [Concomitant]
     Active Substance: LOPINAVIR\RITONAVIR
  14. SUSTIVA [Concomitant]
     Active Substance: EFAVIRENZ

REACTIONS (12)
  - Osteoporosis [Not Recovered/Not Resolved]
  - Economic problem [Unknown]
  - Renal disorder [Not Recovered/Not Resolved]
  - Anxiety [Unknown]
  - Chronic kidney disease [Unknown]
  - Bone density decreased [Unknown]
  - Dysstasia [Unknown]
  - Pain [Unknown]
  - Drug ineffective [Unknown]
  - Emotional distress [Unknown]
  - Renal failure [Unknown]
  - Anhedonia [Unknown]

NARRATIVE: CASE EVENT DATE: 2015
